FAERS Safety Report 12866566 (Version 1)
Quarter: 2016Q4

REPORT INFORMATION
  Report Type: Spontaneous
  Country: US (occurrence: US)
  Receive Date: 20161020
  Receipt Date: 20161020
  Transmission Date: 20170207
  Serious: No
  Sender: FDA-Public Use
  Company Number: US-ELI_LILLY_AND_COMPANY-US201610004746

PATIENT
  Sex: Male

DRUGS (4)
  1. TRULICITY [Suspect]
     Active Substance: DULAGLUTIDE
     Dosage: 0.75 MG, UNK
     Route: 065
  2. FARXIGA [Concomitant]
     Active Substance: DAPAGLIFLOZIN PROPANEDIOL
     Indication: TYPE 2 DIABETES MELLITUS
  3. METFORMIN [Concomitant]
     Active Substance: METFORMIN HYDROCHLORIDE
     Indication: TYPE 2 DIABETES MELLITUS
     Dosage: UNK
  4. TRULICITY [Suspect]
     Active Substance: DULAGLUTIDE
     Indication: TYPE 2 DIABETES MELLITUS
     Dosage: 1.5 MG, UNK
     Route: 065
     Dates: start: 20161012

REACTIONS (1)
  - Diarrhoea [Recovered/Resolved]
